FAERS Safety Report 4534593-0 (Version None)
Quarter: 2004Q4

REPORT INFORMATION
  Report Type: 
  Country: None (occurrence: None)
  Receive Date: 20041214
  Receipt Date: 20040721
  Transmission Date: 20050328
  Serious: No
  Sender: FDA-Public Use
  Company Number: USA040773175

PATIENT
  Age: 78 Year
  Sex: Male

DRUGS (5)
  1. CIALIS [Suspect]
     Indication: ERECTILE DYSFUNCTION
     Dosage: 20 MG
     Dates: start: 20040715
  2. GLUCOPHAGE [Concomitant]
  3. LIPITOR [Concomitant]
  4. VALSARTAN [Concomitant]
  5. TRANDOLAPRIL [Concomitant]

REACTIONS (2)
  - HEADACHE [None]
  - PAIN IN JAW [None]
